FAERS Safety Report 8873920 (Version 1)
Quarter: 2012Q4

REPORT INFORMATION
  Report Type: 
  Country: FR (occurrence: FR)
  Receive Date: 20121023
  Receipt Date: 20121023
  Transmission Date: 20130627
  Serious: Yes (Death, Hospitalization, Other)
  Sender: FDA-Public Use
  Company Number: FR-PFIZER INC-2012262387

PATIENT
  Age: 80 Year
  Sex: Female

DRUGS (14)
  1. ARICEPT [Suspect]
     Indication: DEMENTIA ALZHEIMER^S TYPE
     Dosage: 10 mg, 1x/day
     Route: 048
     Dates: end: 20120903
  2. FLUCONAZOLE [Suspect]
     Indication: INFECTION
     Dosage: 200 mg/day
     Route: 048
     Dates: end: 20120814
  3. ESCITALOPRAM [Suspect]
     Indication: DEPRESSION
     Dosage: 10 mg/day (10 mg,unknown)
     Route: 048
     Dates: start: 20120824, end: 20120826
  4. XATRAL [Suspect]
     Indication: URINARY RETENTION
     Dosage: 10 mg daily
     Route: 048
     Dates: end: 20120814
  5. ILOPROST [Suspect]
     Indication: ISCHAEMIA
     Dosage: 0.05 mg/day
     Route: 042
     Dates: start: 20120816, end: 20120820
  6. PREVISCAN [Suspect]
     Indication: PROPHYLAXIS
     Dosage: 10 mg daily
     Route: 048
     Dates: start: 20120814, end: 20120822
  7. FUROSEMIDE [Concomitant]
     Dosage: UNK
     Dates: end: 20120814
  8. VANCOMYCIN [Concomitant]
     Dosage: UNK
     Dates: end: 20120820
  9. DRIPTANE [Concomitant]
     Dosage: UNK
     Dates: end: 20120824
  10. PARACETAMOL [Concomitant]
     Dosage: UNK
     Dates: end: 20120904
  11. INEXIUM [Concomitant]
     Dosage: UNK
     Dates: end: 20120904
  12. ZINC GLUCONATE [Concomitant]
     Dosage: UNK
     Dates: end: 20120902
  13. DIFFU K [Concomitant]
     Dosage: UNK
     Dates: end: 20120917
  14. VITAMIN D [Concomitant]
     Dosage: UNK
     Dates: end: 20120917

REACTIONS (5)
  - Hepatitis cholestatic [Fatal]
  - Necrosis [Unknown]
  - Sepsis [Unknown]
  - Cholelithiasis [Unknown]
  - Clostridium difficile colitis [Unknown]
